FAERS Safety Report 6846244-0 (Version None)
Quarter: 2010Q3

REPORT INFORMATION
  Report Type: 
  Country: None (occurrence: None)
  Receive Date: 20100715
  Receipt Date: 20070914
  Transmission Date: 20110219
  Serious: No
  Sender: FDA-Public Use
  Company Number: US-PFIZER INC-2007077217

PATIENT
  Age: 77 Year
  Sex: Female
  Weight: 56.2 kg

DRUGS (2)
  1. CHANTIX [Suspect]
     Indication: SMOKING CESSATION THERAPY
     Dates: start: 20060101, end: 20070101
  2. HYPNOTICS AND SEDATIVES [Concomitant]

REACTIONS (3)
  - BLOOD IRON DECREASED [None]
  - DRUG INEFFECTIVE [None]
  - NAUSEA [None]
